FAERS Safety Report 22258929 (Version 1)
Quarter: 2023Q2

REPORT INFORMATION
  Report Type: Spontaneous
  Country: CA (occurrence: None)
  Receive Date: 20230427
  Receipt Date: 20230427
  Transmission Date: 20230721
  Serious: Yes (Hospitalization)
  Sender: FDA-Public Use
  Company Number: CA-PFIZER INC-202300166657

PATIENT
  Age: 70 Year
  Sex: Male

DRUGS (4)
  1. METHOTREXATE [Suspect]
     Active Substance: METHOTREXATE
     Indication: Granulomatosis with polyangiitis
     Route: 048
  2. RUXIENCE [Concomitant]
     Active Substance: RITUXIMAB-PVVR
     Indication: Granulomatosis with polyangiitis
     Dosage: 1000 MG, DAY 0 AND 14
     Route: 042
     Dates: start: 20221003, end: 20221017
  3. SEPTRA DS [Concomitant]
     Active Substance: SULFAMETHOXAZOLE\TRIMETHOPRIM
     Indication: Vasculitis
     Dosage: ON MONDAY, WEDNESDAY AND FRIDAY
     Route: 065
  4. FOLIC ACID [Concomitant]
     Active Substance: FOLIC ACID
     Route: 065

REACTIONS (7)
  - Haemoptysis [Unknown]
  - Polyarthritis [Unknown]
  - Palpable purpura [Unknown]
  - Product use in unapproved indication [Unknown]
  - Epistaxis [Not Recovered/Not Resolved]
  - Disease recurrence [Unknown]
  - Blood creatinine increased [Not Recovered/Not Resolved]

NARRATIVE: CASE EVENT DATE: 20220601
